FAERS Safety Report 7690403-4 (Version None)
Quarter: 2011Q3

REPORT INFORMATION
  Report Type: 
  Country: None (occurrence: None)
  Receive Date: 20110812
  Receipt Date: 20110802
  Transmission Date: 20111222
  Serious: Yes (Other)
  Sender: FDA-Public Use
  Company Number: TRP_07868_2011

PATIENT
  Age: 28 Year
  Sex: Female

DRUGS (5)
  1. REGLAN /0041901/ [Concomitant]
  2. INSULIN [Concomitant]
  3. RIBASPHERE [Suspect]
     Indication: HEPATITIS C
     Dosage: (1000 MG, PER DAY ORAL)
     Route: 048
     Dates: start: 20090801, end: 20100729
  4. NOVOLOG [Concomitant]
  5. INTERFERON ALFA [Suspect]
     Indication: HEPATITIS C
     Dosage: (DF SUBCUTANEOUS)
     Route: 058
     Dates: start: 20090801, end: 20100722

REACTIONS (3)
  - PREGNANCY [None]
  - MATERNAL EXPOSURE DURING PREGNANCY [None]
  - ABORTION INDUCED [None]
